FAERS Safety Report 21326095 (Version 2)
Quarter: 2022Q3

REPORT INFORMATION
  Report Type: Spontaneous
  Country: US (occurrence: US)
  Receive Date: 20220913
  Receipt Date: 20220913
  Transmission Date: 20221027
  Serious: Yes (Death)
  Sender: FDA-Public Use
  Company Number: US-JNJFOC-20210840032

PATIENT
  Age: 68 Year
  Sex: Male

DRUGS (1)
  1. BALVERSA [Suspect]
     Active Substance: ERDAFITINIB
     Indication: Product used for unknown indication
     Dosage: THE LAST KNOWN DOSE OF DRUG WAS ADMINISTERED ON 29-JAN-2021.
     Route: 048

REACTIONS (1)
  - Death [Fatal]
